FAERS Safety Report 8100299-4 (Version None)
Quarter: 2012Q1

REPORT INFORMATION
  Report Type: 
  Country: None (occurrence: None)
  Receive Date: 20120129
  Receipt Date: 20111123
  Transmission Date: 20120608
  Serious: No
  Sender: FDA-Public Use
  Company Number: US-ABBOTT-11P-163-0877359-00

PATIENT
  Sex: Male

DRUGS (2)
  1. HUMIRA [Suspect]
     Indication: PSORIASIS
     Route: 058
     Dates: start: 20111123, end: 20111123
  2. ANTIBIOTIC [Concomitant]
     Indication: EAR INFECTION
     Route: 048
     Dates: start: 20111118

REACTIONS (1)
  - CONTRAINDICATION TO MEDICAL TREATMENT [None]
